FAERS Safety Report 7831721-6 (Version None)
Quarter: 2011Q4

REPORT INFORMATION
  Report Type: 
  Country: None (occurrence: None)
  Receive Date: 20111021
  Receipt Date: 20111018
  Transmission Date: 20120403
  Serious: Yes (Other)
  Sender: FDA-Public Use
  Company Number: SE-BAXTER-2011BH030899

PATIENT
  Age: 35 Year
  Sex: Male

DRUGS (4)
  1. IFOSFAMIDE [Suspect]
     Indication: BONE SARCOMA
     Route: 042
     Dates: start: 20060101, end: 20070101
  2. METHOTREXATE [Suspect]
     Indication: BONE SARCOMA
     Route: 042
     Dates: start: 20060101, end: 20070101
  3. CISPLATIN [Suspect]
     Indication: BONE SARCOMA
     Route: 042
     Dates: start: 20060101, end: 20070101
  4. DOXORUBICIN HCL [Suspect]
     Indication: BONE SARCOMA
     Route: 065
     Dates: start: 20060101, end: 20070101

REACTIONS (1)
  - TUBULOINTERSTITIAL NEPHRITIS [None]
